FAERS Safety Report 19690387 (Version 3)
Quarter: 2021Q3

REPORT INFORMATION
  Report Type: Report from Study
  Country: GB (occurrence: GB)
  Receive Date: 20210812
  Receipt Date: 20210824
  Transmission Date: 20211014
  Serious: Yes (Hospitalization, Other)
  Sender: FDA-Public Use
  Company Number: GB-PFIZER INC-202100969266

PATIENT
  Age: 67 Year
  Sex: Female
  Weight: 65.25 kg

DRUGS (40)
  1. AMLODIPINE [Concomitant]
     Active Substance: AMLODIPINE BESYLATE
     Dosage: 1 UNK, 1X/DAY
     Route: 065
     Dates: start: 2011
  2. CO?AMOXICLAV [AMOXICILLIN SODIUM;CLAVULANATE POTASSIUM] [Concomitant]
     Active Substance: AMOXICILLIN\CLAVULANATE POTASSIUM
     Dosage: AMOXICILLIN 500MG +POTASSIUMCLAVUNALATE 125MG TABLET
     Route: 065
     Dates: start: 20210522, end: 20210531
  3. METOCLOPRAMIDE. [Concomitant]
     Active Substance: METOCLOPRAMIDE
     Route: 065
     Dates: start: 20210620
  4. MOVICOL [Concomitant]
     Active Substance: POLYETHYLENE GLYCOL 3350\POTASSIUM CHLORIDE\SODIUM BICARBONATE\SODIUM CHLORIDE
     Dosage: UNK, AS NEEDED
     Route: 065
     Dates: start: 20210427
  5. ACIDEX ADVANCE [Concomitant]
     Indication: DYSPEPSIA
     Dosage: UNK
     Route: 048
     Dates: start: 20210620
  6. ETOPOSIDE. [Suspect]
     Active Substance: ETOPOSIDE
     Indication: SMALL CELL LUNG CANCER EXTENSIVE STAGE
     Dosage: 164 MG
     Route: 065
     Dates: start: 20210401
  7. BISACODYL. [Concomitant]
     Active Substance: BISACODYL
     Dosage: 2 DF, 2X/DAY
     Route: 065
     Dates: start: 20210426
  8. BISOPROLOL [Concomitant]
     Active Substance: BISOPROLOL
     Dosage: UNK, 1X/DAY
     Route: 065
     Dates: start: 2019
  9. DEXAMETHASONE. [Concomitant]
     Active Substance: DEXAMETHASONE
     Dosage: 8 MG
     Route: 065
     Dates: start: 20210513, end: 20210513
  10. METOCLOPRAMIDE. [Concomitant]
     Active Substance: METOCLOPRAMIDE
     Indication: NAUSEA
     Dosage: 10 MG, WHENREQUIRED WITH A MINIMUM DOSAGEINTERVAL OF 6 HOURS AND A MAXIMUM OF
     Route: 065
     Dates: start: 20210620
  11. METOCLOPRAMIDE. [Concomitant]
     Active Substance: METOCLOPRAMIDE
     Indication: VOMITING
     Route: 065
     Dates: start: 20210620
  12. NOCTEC [Concomitant]
     Active Substance: CHLORAL HYDRATE
     Route: 065
     Dates: start: 20210522
  13. SANDO K [POTASSIUM BICARBONATE;POTASSIUM CHLORIDE] [Concomitant]
     Active Substance: POTASSIUM BICARBONATE\POTASSIUM CHLORIDE
     Dosage: UNK, 1X/DAY
     Route: 065
     Dates: start: 20210623, end: 20210626
  14. METOCLOPRAMIDE HYDROCHLORIDE. [Concomitant]
     Active Substance: METOCLOPRAMIDE HYDROCHLORIDE
     Indication: NAUSEA
     Route: 065
     Dates: start: 20210620
  15. CHOLINE [Concomitant]
     Active Substance: CHOLINE
  16. DEXAMETHASONE. [Concomitant]
     Active Substance: DEXAMETHASONE
     Dosage: 8 MG
     Route: 065
     Dates: start: 20210610, end: 20210610
  17. DOCUSATE SODIUM. [Concomitant]
     Active Substance: DOCUSATE SODIUM
     Dosage: UNK
     Route: 065
     Dates: start: 20210620
  18. FILGRASTIM [Concomitant]
     Active Substance: FILGRASTIM
     Dosage: 30 MILLION UNITS/ 0.5MLINJECTION
     Route: 065
     Dates: start: 20210625, end: 20210628
  19. AMOXICILLIN. [Concomitant]
     Active Substance: AMOXICILLIN
     Route: 065
     Dates: start: 20210427
  20. DEXAMETHASONE. [Concomitant]
     Active Substance: DEXAMETHASONE
     Dosage: UNK
     Route: 065
     Dates: start: 20210422, end: 20210422
  21. DOCUSATE SODIUM. [Concomitant]
     Active Substance: DOCUSATE SODIUM
     Dosage: UNK
     Route: 065
     Dates: start: 20210601
  22. PARACETAMOL [Concomitant]
     Active Substance: ACETAMINOPHEN
     Dosage: 1G, WHEN REQUIRED WITH A MINIMUMDOSAGE INTERVAL OF 4 HOURS AND AMAXIMUM OF 4 DOSES PER 24 HOURS
     Route: 065
     Dates: start: 20210522
  23. PHOSPHATE SANDOZ [Concomitant]
     Active Substance: SODIUM PHOSPHATE, MONOBASIC, ANHYDROUS
     Dosage: UNK, 2X/DAY EFFERVESCENT
     Route: 065
     Dates: start: 20210527, end: 20210529
  24. ETOPOSIDE. [Suspect]
     Active Substance: ETOPOSIDE
     Dosage: 600 MG
     Route: 048
     Dates: start: 20210423
  25. GLYCEROL [Concomitant]
     Active Substance: GLYCERIN
     Route: 065
     Dates: start: 20210430
  26. NICOTINE. [Concomitant]
     Active Substance: NICOTINE
     Dosage: 21MG/24HOUR TRANSDERMAL PATCH
     Route: 062
     Dates: start: 20210522
  27. NICOTINE. [Concomitant]
     Active Substance: NICOTINE
     Dosage: 1MG ORAL SPRAY MANAGEMENT OF NICOTINE WITHDRAWAL. 1 TO 2 SPRAYS, WHEN REQUIRED WITH A MINIMUM DOSAGE
     Route: 048
     Dates: start: 20210522
  28. ONDANSETRON [Concomitant]
     Active Substance: ONDANSETRON
     Dosage: 8 MG
     Route: 065
     Dates: start: 20210513, end: 20210513
  29. PARACETAMOL [Concomitant]
     Active Substance: ACETAMINOPHEN
     Route: 065
     Dates: start: 20210620
  30. BISACODYL. [Concomitant]
     Active Substance: BISACODYL
     Dosage: UNK, 2X/DAY
     Route: 065
     Dates: start: 20210426
  31. RAMIPRIL. [Concomitant]
     Active Substance: RAMIPRIL
     Dosage: 1 UNK, 1X/DAY
     Route: 065
     Dates: start: 2011
  32. FORTISIP COMPACT PROTEIN [Concomitant]
  33. ANISEED [Concomitant]
     Indication: DYSPEPSIA
     Route: 048
  34. ATEZOLIZUMAB. [Suspect]
     Active Substance: ATEZOLIZUMAB
     Indication: SMALL CELL LUNG CANCER EXTENSIVE STAGE
     Dosage: 1200 MG, EVERY 3 WEEKS
     Route: 041
     Dates: start: 20210401
  35. ONDANSETRON [Concomitant]
     Active Substance: ONDANSETRON
     Dosage: 8 MG
     Route: 065
     Dates: start: 20210610, end: 20210610
  36. CARBOPLATIN. [Suspect]
     Active Substance: CARBOPLATIN
     Indication: SMALL CELL LUNG CANCER EXTENSIVE STAGE
     Dosage: 450 MG
     Route: 065
     Dates: start: 20210401
  37. SENNOSIDES A+B [Concomitant]
     Active Substance: SENNOSIDES A AND B
     Dosage: UNK, 1X/DAY
     Route: 065
     Dates: start: 20210522
  38. THIAMINE. [Concomitant]
     Active Substance: THIAMINE
     Indication: VITAMIN B COMPLEX DEFICIENCY
     Dosage: PREVENT OR TREAT VITAMIN B DEFICIENCY.PRESCRIBED TO BE TAKEN AFTERHOSPITALISATION WITH NEUTROPENIC
     Route: 065
     Dates: start: 20210624, end: 20210628
  39. MEROPENEM. [Concomitant]
     Active Substance: MEROPENEM
  40. VITAMIN B CO [Concomitant]

REACTIONS (8)
  - Immune-mediated enterocolitis [Recovered/Resolved]
  - Neutropenic sepsis [Recovered/Resolved]
  - Endometrial cancer [Not Recovered/Not Resolved]
  - Back pain [Not Recovered/Not Resolved]
  - Thrombocytopenia [Recovered/Resolved]
  - Abdominal pain [Recovered/Resolved]
  - Constipation [Unknown]
  - Second primary malignancy [Not Recovered/Not Resolved]

NARRATIVE: CASE EVENT DATE: 20210404
